FAERS Safety Report 16551789 (Version 1)
Quarter: 2019Q3

REPORT INFORMATION
  Report Type: Spontaneous
  Country: US (occurrence: US)
  Receive Date: 20190710
  Receipt Date: 20190710
  Transmission Date: 20191004
  Serious: Yes (Other)
  Sender: FDA-Public Use
  Company Number: US-GILEAD-2019-0417306

PATIENT
  Age: 56 Year
  Sex: Female

DRUGS (5)
  1. SOVALDI [Suspect]
     Active Substance: SOFOSBUVIR
     Indication: CHRONIC HEPATITIS C
     Dosage: 400 MG, QD
     Route: 065
     Dates: start: 20140910
  2. PEGASYS [Suspect]
     Active Substance: PEGINTERFERON ALFA-2A
     Indication: CHRONIC HEPATITIS C
     Dosage: 180 UG, Q1WK
     Route: 058
     Dates: start: 20140910
  3. PEGASYS [Suspect]
     Active Substance: PEGINTERFERON ALFA-2A
     Dosage: 135 UG, Q1WK
     Route: 058
     Dates: start: 20141029
  4. RIBAVIRIN. [Suspect]
     Active Substance: RIBAVIRIN
     Indication: CHRONIC HEPATITIS C
     Dosage: DIVIDED DOSES 400/600
     Route: 065
     Dates: start: 20140910
  5. ATIVAN [Concomitant]
     Active Substance: LORAZEPAM
     Indication: ANXIETY
     Route: 065

REACTIONS (13)
  - Homicidal ideation [Unknown]
  - Neutrophil count decreased [Unknown]
  - Insomnia [Unknown]
  - Red blood cell count decreased [Unknown]
  - Pruritus [Unknown]
  - Suicidal ideation [Unknown]
  - Constipation [Unknown]
  - Fatigue [Unknown]
  - Anxiety [Unknown]
  - Platelet count decreased [Unknown]
  - Headache [Unknown]
  - Depression [Unknown]
  - Rash [Unknown]

NARRATIVE: CASE EVENT DATE: 20141026
